FAERS Safety Report 6387969-3 (Version None)
Quarter: 2009Q4

REPORT INFORMATION
  Report Type: 
  Country: None (occurrence: None)
  Receive Date: 20091005
  Receipt Date: 20090924
  Transmission Date: 20100525
  Serious: Yes (Other)
  Sender: FDA-Public Use
  Company Number: US-AMGEN-QUU365223

PATIENT
  Sex: Female

DRUGS (2)
  1. ENBREL [Suspect]
     Indication: PSORIATIC ARTHROPATHY
     Route: 058
     Dates: start: 20070501, end: 20070901
  2. ENBREL [Suspect]
     Indication: PSORIASIS

REACTIONS (4)
  - GESTATIONAL DIABETES [None]
  - PREGNANCY INDUCED HYPERTENSION [None]
  - PSORIASIS [None]
  - SYSTEMIC LUPUS ERYTHEMATOSUS [None]
